FAERS Safety Report 18351170 (Version 4)
Quarter: 2020Q4

REPORT INFORMATION
  Report Type: Spontaneous
  Country: GB (occurrence: GB)
  Receive Date: 20201006
  Receipt Date: 20201111
  Transmission Date: 20210114
  Serious: Yes (Death, Hospitalization)
  Sender: FDA-Public Use
  Company Number: GB-CELGENEUS-GBR-20201000510

PATIENT
  Age: 74 Year
  Sex: Male
  Weight: 89.3 kg

DRUGS (53)
  1. DARATUMUMAB [Concomitant]
     Active Substance: DARATUMUMAB
     Indication: PLASMA CELL MYELOMA
     Dosage: 1440 MILLIGRAM
     Route: 041
     Dates: start: 20161130, end: 20191030
  2. BISOPROLOL [Concomitant]
     Active Substance: BISOPROLOL
     Indication: CARDIAC FAILURE
     Dosage: 1.25 MILLIGRAM
     Route: 048
     Dates: start: 20170608
  3. ONDANSETRON [Concomitant]
     Active Substance: ONDANSETRON
     Indication: PRODUCT USED FOR UNKNOWN INDICATION
     Dosage: 16 MILLIGRAM
     Route: 048
     Dates: start: 20200102
  4. ALLOPURINOL. [Concomitant]
     Active Substance: ALLOPURINOL
     Indication: PROPHYLAXIS
     Route: 065
  5. AMOXYCILLIN [Concomitant]
     Active Substance: AMOXICILLIN
     Indication: URINARY TRACT INFECTION
     Route: 065
  6. AMOXYCILLIN [Concomitant]
     Active Substance: AMOXICILLIN
     Indication: LARGE INTESTINE PERFORATION
  7. AMOXYCILLIN [Concomitant]
     Active Substance: AMOXICILLIN
     Indication: PYREXIA
  8. FLUCLOXACILLIN [Concomitant]
     Active Substance: FLUCLOXACILLIN
     Indication: CYST
     Route: 065
  9. PARACETAMOL [Concomitant]
     Active Substance: ACETAMINOPHEN
     Indication: PYREXIA
  10. EPLERENONE. [Concomitant]
     Active Substance: EPLERENONE
     Indication: CARDIAC DYSFUNCTION
     Dosage: 25 MILLIGRAM
     Route: 048
     Dates: start: 20171112
  11. RIVAROXABAN [Concomitant]
     Active Substance: RIVAROXABAN
     Dosage: 20 MILLIGRAM
     Route: 048
     Dates: start: 20180802
  12. CHLORPHENAMINE [Concomitant]
     Active Substance: CHLORPHENIRAMINE MALEATE
     Indication: FLUSHING
     Route: 065
  13. METRONIDAZOLE. [Concomitant]
     Active Substance: METRONIDAZOLE
     Indication: PYREXIA
     Route: 065
  14. DEXAMETHASONE. [Suspect]
     Active Substance: DEXAMETHASONE
     Indication: PLASMA CELL MYELOMA
     Dosage: 10 MILLIGRAM
     Route: 048
     Dates: start: 20161130, end: 20191030
  15. AMOXYCILLIN [Concomitant]
     Active Substance: AMOXICILLIN
     Indication: TENDERNESS
  16. METRONIDAZOLE. [Concomitant]
     Active Substance: METRONIDAZOLE
     Indication: PANCREATITIS
  17. LAXIDO [Concomitant]
     Active Substance: POLYETHYLENE GLYCOL 3350\POTASSIUM CHLORIDE\SODIUM BICARBONATE\SODIUM CHLORIDE
     Indication: BOWEL MOVEMENT IRREGULARITY
  18. FOLIC ACID. [Concomitant]
     Active Substance: FOLIC ACID
     Indication: DECREASED APPETITE
     Dosage: 5 MICROGRAM
     Route: 048
     Dates: start: 20161129
  19. DALTEPARIN [Concomitant]
     Active Substance: DALTEPARIN
     Indication: BACK PAIN
  20. HYDROMORPHONE [Concomitant]
     Active Substance: HYDROMORPHONE
     Indication: PAIN
     Route: 048
     Dates: start: 20171113
  21. EPLERENONE. [Concomitant]
     Active Substance: EPLERENONE
     Indication: PROPHYLAXIS
     Dosage: 25 MILLIGRAM
     Route: 048
     Dates: start: 20180730
  22. GENTAMYCIN [Concomitant]
     Active Substance: GENTAMICIN
     Indication: LARGE INTESTINE PERFORATION
  23. TAMSULOSIN [Concomitant]
     Active Substance: TAMSULOSIN
     Indication: URINARY RETENTION
     Dosage: 400 MILLIGRAM
     Route: 048
     Dates: start: 20170313
  24. CALCICHEW D3 FORTE [Concomitant]
     Active Substance: CALCIUM\CHOLECALCIFEROL
     Indication: PRODUCT USED FOR UNKNOWN INDICATION
     Dosage: 500 MILLIGRAM
     Route: 048
     Dates: start: 20170314
  25. PARACETAMOL [Concomitant]
     Active Substance: ACETAMINOPHEN
     Indication: BACK PAIN
     Dosage: 4 GRAM
     Route: 048
     Dates: start: 20161130
  26. HYDROMORPHONE [Concomitant]
     Active Substance: HYDROMORPHONE
     Indication: BACK PAIN
     Dosage: 14 MILLIGRAM
     Route: 048
     Dates: start: 20181016
  27. NYSTATIN. [Concomitant]
     Active Substance: NYSTATIN
     Indication: PROPHYLAXIS
     Dosage: 4 MILLILITER
     Route: 048
     Dates: start: 201912
  28. OXYCODON [Concomitant]
     Active Substance: OXYCODONE
     Indication: PRODUCT USED FOR UNKNOWN INDICATION
     Route: 048
     Dates: start: 20170205
  29. MORPHINE SULPHATE [Concomitant]
     Active Substance: MORPHINE SULFATE
     Indication: BACK PAIN
     Route: 065
  30. HYDROCORTISONE. [Concomitant]
     Active Substance: HYDROCORTISONE
     Indication: FLUSHING
     Route: 065
  31. ENSURE [Concomitant]
     Active Substance: AMINO ACIDS\DEXTROSE\ELECTROLYTES NOS\SOYBEAN OIL\VITAMINS
     Indication: DECREASED APPETITE
     Route: 065
  32. TAZOCIN [Concomitant]
     Active Substance: PIPERACILLIN SODIUM\TAZOBACTAM SODIUM
     Indication: PANCREATITIS
  33. LENALIDOMIDE [Suspect]
     Active Substance: LENALIDOMIDE
     Indication: PLASMA CELL MYELOMA
     Dosage: 15 MILLIGRAM
     Route: 048
     Dates: start: 20161130, end: 201706
  34. DOCUSATE [Concomitant]
     Active Substance: DOCUSATE
     Indication: CONSTIPATION
     Dosage: 800 MILLIGRAM
     Route: 048
     Dates: start: 20170313
  35. OXYCODONE [Concomitant]
     Active Substance: OXYCODONE
     Indication: BACK PAIN
     Dosage: 50 MILLIGRAM
     Route: 048
     Dates: start: 20170205
  36. DALTEPARIN [Concomitant]
     Active Substance: DALTEPARIN
     Indication: PULMONARY EMBOLISM
     Route: 058
     Dates: start: 20170312
  37. OMEPRAZOLE. [Concomitant]
     Active Substance: OMEPRAZOLE
     Indication: GASTROOESOPHAGEAL REFLUX DISEASE
     Dosage: 20 MILLIGRAM
     Route: 048
     Dates: start: 20171112
  38. AMOXYCILLIN [Concomitant]
     Active Substance: AMOXICILLIN
     Indication: LOWER RESPIRATORY TRACT INFECTION
  39. METRONIDAZOLE. [Concomitant]
     Active Substance: METRONIDAZOLE
     Indication: LARGE INTESTINE PERFORATION
  40. GENTAMYCIN [Concomitant]
     Active Substance: GENTAMICIN
     Indication: PYREXIA
  41. TAZOCIN [Concomitant]
     Active Substance: PIPERACILLIN SODIUM\TAZOBACTAM SODIUM
     Indication: BACK PAIN
     Route: 065
  42. OXYCODONE [Concomitant]
     Active Substance: OXYCODONE
     Indication: LARGE INTESTINE PERFORATION
  43. RAMIPRIL. [Concomitant]
     Active Substance: RAMIPRIL
     Indication: CARDIAC FAILURE
     Dosage: 1.25 MILLIGRAM/KILOGRAM
     Route: 048
     Dates: start: 20170608
  44. RIVAROXABAN [Concomitant]
     Active Substance: RIVAROXABAN
     Indication: PULMONARY EMBOLISM
     Dosage: 20 MILLIGRAM
     Route: 048
     Dates: start: 20171112
  45. CHLORPHENAMINE [Concomitant]
     Active Substance: CHLORPHENIRAMINE MALEATE
     Indication: PHARYNGEAL SWELLING
  46. LAXIDO [Concomitant]
     Active Substance: POLYETHYLENE GLYCOL 3350\POTASSIUM CHLORIDE\SODIUM BICARBONATE\SODIUM CHLORIDE
     Indication: CONSTIPATION
     Route: 065
  47. GENTAMYCIN [Concomitant]
     Active Substance: GENTAMICIN
     Indication: PNEUMONIA KLEBSIELLA
     Route: 065
  48. GENTAMYCIN [Concomitant]
     Active Substance: GENTAMICIN
     Indication: TENDERNESS
  49. TAZOCIN [Concomitant]
     Active Substance: PIPERACILLIN SODIUM\TAZOBACTAM SODIUM
     Indication: PYREXIA
  50. NITROFURANTOIN. [Concomitant]
     Active Substance: NITROFURANTOIN
     Indication: URINARY TRACT INFECTION
     Dosage: 50 MILLIGRAM
     Route: 048
     Dates: start: 20170105
  51. DALTEPARIN [Concomitant]
     Active Substance: DALTEPARIN
     Indication: THROMBOSIS PROPHYLAXIS
  52. OMEPRAZOLE. [Concomitant]
     Active Substance: OMEPRAZOLE
     Indication: GASTROINTESTINAL DISORDER PROPHYLAXIS
  53. HYDROCORTISONE. [Concomitant]
     Active Substance: HYDROCORTISONE
     Indication: PHARYNGEAL SWELLING

REACTIONS (3)
  - Death [Fatal]
  - Acute myeloid leukaemia [Not Recovered/Not Resolved]
  - Urinary tract infection [Recovered/Resolved]

NARRATIVE: CASE EVENT DATE: 20200801
